FAERS Safety Report 5619214-8 (Version None)
Quarter: 2008Q1

REPORT INFORMATION
  Report Type: 
  Country: None (occurrence: None)
  Receive Date: 20080205
  Receipt Date: 20080121
  Transmission Date: 20080703
  Serious: Yes (Other)
  Sender: FDA-Public Use
  Company Number: 100#08#2008-00508

PATIENT
  Age: 38 Year
  Sex: Male

DRUGS (1)
  1. ANAGRELIDE HCL [Suspect]
     Indication: THROMBOCYTHAEMIA
     Dosage: 2 X 500 MG

REACTIONS (3)
  - DERMATITIS [None]
  - SKIN NECROSIS [None]
  - SKIN ULCER [None]
